FAERS Safety Report 6909426-5 (Version None)
Quarter: 2010Q3

REPORT INFORMATION
  Report Type: 
  Country: None (occurrence: None)
  Receive Date: 20100805
  Receipt Date: 20100729
  Transmission Date: 20110219
  Serious: Yes (Hospitalization)
  Sender: FDA-Public Use
  Company Number: A0872963A

PATIENT
  Age: 35 Year
  Sex: Female

DRUGS (5)
  1. ARZERRA [Suspect]
     Dosage: 2000MG WEEKLY
     Dates: start: 20100406
  2. LUNESTA [Concomitant]
  3. PRISTIQ [Concomitant]
  4. PROMETHAZINE [Concomitant]
  5. VITAMIN B-12 [Concomitant]

REACTIONS (5)
  - ANAEMIA [None]
  - LYMPHADENOPATHY [None]
  - LYMPHOCYTE COUNT INCREASED [None]
  - PYREXIA [None]
  - WEIGHT DECREASED [None]
